FAERS Safety Report 13565757 (Version 2)
Quarter: 2017Q3

REPORT INFORMATION
  Report Type: Spontaneous
  Country: DE (occurrence: DE)
  Receive Date: 20170520
  Receipt Date: 20170713
  Transmission Date: 20171127
  Serious: Yes (Hospitalization, Other)
  Sender: FDA-Public Use
  Company Number: DE-TORRENT-00006321

PATIENT
  Age: 54 Year
  Sex: Female

DRUGS (6)
  1. MIRTAZAPINE. [Concomitant]
     Active Substance: MIRTAZAPINE
  2. VALPROIC ACID. [Suspect]
     Active Substance: VALPROIC ACID
  3. SERTRALINE [Concomitant]
     Active Substance: SERTRALINE HYDROCHLORIDE
  4. ARIPIPRAZOLE. [Concomitant]
     Active Substance: ARIPIPRAZOLE
  5. QUETIAPINE. [Interacting]
     Active Substance: QUETIAPINE
  6. OLANZAPINE. [Concomitant]
     Active Substance: OLANZAPINE

REACTIONS (10)
  - Cognitive disorder [Recovering/Resolving]
  - Memory impairment [Recovering/Resolving]
  - Tremor [Recovering/Resolving]
  - Dizziness [Recovering/Resolving]
  - Visual acuity reduced [Recovering/Resolving]
  - Gait disturbance [Recovering/Resolving]
  - Muscle rigidity [Recovering/Resolving]
  - Off label use [Unknown]
  - Balance disorder [Recovering/Resolving]
  - Drug interaction [Unknown]
